FAERS Safety Report 13222487 (Version 2)
Quarter: 2017Q2

REPORT INFORMATION
  Report Type: Spontaneous
  Country: US (occurrence: US)
  Receive Date: 20170212
  Receipt Date: 20170519
  Transmission Date: 20170830
  Serious: No
  Sender: FDA-Public Use
  Company Number: US-TEVA-737732ACC

PATIENT
  Sex: Female

DRUGS (11)
  1. LISINOPRIL. [Concomitant]
     Active Substance: LISINOPRIL
  2. LACTULOSE. [Concomitant]
     Active Substance: LACTULOSE
  3. IRON [Concomitant]
     Active Substance: IRON
  4. XANAX [Concomitant]
     Active Substance: ALPRAZOLAM
  5. CELEXA [Concomitant]
     Active Substance: CITALOPRAM HYDROBROMIDE
  6. LEVOTHYROXIN [Concomitant]
     Active Substance: LEVOTHYROXINE
  7. ASPIRIN. [Concomitant]
     Active Substance: ASPIRIN
  8. COPAXONE [Suspect]
     Active Substance: GLATIRAMER ACETATE
     Indication: MULTIPLE SCLEROSIS
     Route: 058
     Dates: start: 20170112
  9. WARFARIN [Concomitant]
     Active Substance: WARFARIN
  10. VITAMIN C [Concomitant]
     Active Substance: ASCORBIC ACID
  11. METOLAZONE. [Concomitant]
     Active Substance: METOLAZONE

REACTIONS (2)
  - Fall [Unknown]
  - Pain [Unknown]
